FAERS Safety Report 5031487-1 (Version None)
Quarter: 2006Q2

REPORT INFORMATION
  Report Type: 
  Country: None (occurrence: None)
  Receive Date: 20060504
  Receipt Date: 20060104
  Transmission Date: 20061013
  Serious: Yes (Other)
  Sender: FDA-Public Use
  Company Number: SUS1-2006-00004

PATIENT

DRUGS (1)
  1. ANAGRELIDE HCL [Suspect]

REACTIONS (12)
  - ACUTE MYOCARDIAL INFARCTION [None]
  - ANAEMIA [None]
  - ANGINA PECTORIS [None]
  - ARRHYTHMIA [None]
  - CARDIOMYOPATHY [None]
  - DRUG EFFECT DECREASED [None]
  - EMBOLISM [None]
  - HAEMORRHAGE [None]
  - NEPHROPATHY TOXIC [None]
  - PALPITATIONS [None]
  - TACHYCARDIA [None]
  - THROMBOSIS [None]
